FAERS Safety Report 11965350 (Version 1)
Quarter: 2016Q1

REPORT INFORMATION
  Report Type: Spontaneous
  Country: CN (occurrence: CN)
  Receive Date: 20160127
  Receipt Date: 20160127
  Transmission Date: 20160526
  Serious: Yes (Hospitalization)
  Sender: FDA-Public Use
  Company Number: CN-ABBVIE-16P-035-1547147-00

PATIENT
  Age: 79 Year
  Sex: Female
  Weight: 55 kg

DRUGS (3)
  1. KLACID [Suspect]
     Active Substance: CLARITHROMYCIN
     Indication: INFECTION
     Route: 048
     Dates: start: 20150815, end: 20150815
  2. AMOXICILLIN. [Suspect]
     Active Substance: AMOXICILLIN
     Indication: INFECTION
     Route: 048
     Dates: start: 20150815, end: 20150816
  3. NEXIUM [Concomitant]
     Active Substance: ESOMEPRAZOLE MAGNESIUM
     Indication: GASTRIC PH DECREASED
     Route: 048
     Dates: start: 20150815, end: 20150821

REACTIONS (5)
  - Erythema [Recovered/Resolved]
  - Pruritus [Recovered/Resolved]
  - Chest discomfort [Recovering/Resolving]
  - Pyrexia [Not Recovered/Not Resolved]
  - Palpitations [Recovered/Resolved]

NARRATIVE: CASE EVENT DATE: 20150815
